FAERS Safety Report 5788907-4 (Version None)
Quarter: 2008Q2

REPORT INFORMATION
  Report Type: 
  Country: None (occurrence: None)
  Receive Date: 20080626
  Receipt Date: 20080616
  Transmission Date: 20081010
  Serious: Yes (Hospitalization, Other)
  Sender: FDA-Public Use
  Company Number: JP-WYE-H04436008

PATIENT
  Sex: Female

DRUGS (2)
  1. PREMARIN [Suspect]
     Indication: UTERINE PROLAPSE
     Route: 048
     Dates: start: 20080507, end: 20080523
  2. PREMARIN [Suspect]
     Indication: NEUROGENIC BLADDER

REACTIONS (2)
  - LOSS OF CONSCIOUSNESS [None]
  - THROMBOSIS [None]
